FAERS Safety Report 7077635-3 (Version None)
Quarter: 2010Q4

REPORT INFORMATION
  Report Type: 
  Country: None (occurrence: None)
  Receive Date: 20101101
  Receipt Date: 20101020
  Transmission Date: 20110411
  Serious: Yes (Other)
  Sender: FDA-Public Use
  Company Number: GB-BAYER-201043467GPV

PATIENT
  Sex: Female

DRUGS (2)
  1. AVELOX [Suspect]
     Dosage: APP. ONE MONTH
     Route: 048
  2. AVELOX [Suspect]
     Route: 048
     Dates: start: 20101001

REACTIONS (1)
  - CORNEAL DEPOSITS [None]
